FAERS Safety Report 4499786-X (Version None)
Quarter: 2004Q4

REPORT INFORMATION
  Report Type: 
  Country: None (occurrence: None)
  Receive Date: 20041108
  Receipt Date: 20041102
  Transmission Date: 20050328
  Serious: Yes (Hospitalization)
  Sender: FDA-Public Use
  Company Number: 1998-06-0072

PATIENT
  Age: 43 Year
  Sex: Male

DRUGS (3)
  1. INTRON A [Suspect]
     Indication: HEPATITIS C
     Dosage: 3 MU TIW SUBCUTANEOUS
     Route: 058
     Dates: start: 19970227, end: 19980602
  2. RIBAVIRIN [Suspect]
     Indication: HEPATITIS C
     Dosage: 1000 MG DAILY ORAL
     Route: 048
     Dates: start: 19970227, end: 19980602
  3. COCIANE INHALATION [Concomitant]

REACTIONS (10)
  - ANOREXIA [None]
  - AUTOIMMUNE THYROIDITIS [None]
  - DIPLOPIA [None]
  - DYSPNOEA [None]
  - EYELID PTOSIS [None]
  - FALL [None]
  - FATIGUE [None]
  - HYPERTHYROIDISM [None]
  - MYASTHENIA GRAVIS [None]
  - WEIGHT DECREASED [None]
